FAERS Safety Report 5482079-1 (Version None)
Quarter: 2007Q4

REPORT INFORMATION
  Report Type: 
  Country: None (occurrence: None)
  Receive Date: 20071005
  Receipt Date: 20070920
  Transmission Date: 20080405
  Serious: Yes (Death)
  Sender: FDA-Public Use
  Company Number: S07-SWI-05279-01

PATIENT
  Age: 87 Year
  Sex: Male

DRUGS (11)
  1. CITALOPRAM HYDROBROMIDE [Suspect]
     Dosage: 20 MG QD PO
     Route: 048
     Dates: end: 20070619
  2. DIPIPERON (PIPAMPERONE) [Suspect]
     Dosage: 40 MG QD
     Dates: start: 20070617, end: 20070618
  3. DIPIPERON (PIPAMPERONE) [Suspect]
     Dosage: 30 MG QD
     Dates: start: 20070619, end: 20070619
  4. HALDOL [Suspect]
     Dosage: 2 MG QD PO
     Route: 048
     Dates: start: 20070615, end: 20070618
  5. HALDOL [Suspect]
     Dosage: 0.5 MG QD
     Dates: start: 20070619, end: 20070619
  6. ACETYLCYSTEINE [Concomitant]
  7. DEANXIT [Concomitant]
  8. LORAZEPAM [Concomitant]
  9. ASPIRIN [Concomitant]
  10. BISOPROLOL FUMARATE [Concomitant]
  11. PRAVALOTIN (PRAVASTATIN SODIUM) [Concomitant]

REACTIONS (4)
  - CARDIO-RESPIRATORY ARREST [None]
  - CONCOMITANT DISEASE AGGRAVATED [None]
  - CYANOSIS [None]
  - PANIC ATTACK [None]
